FAERS Safety Report 9063677 (Version 1)
Quarter: 2013Q1

REPORT INFORMATION
  Report Type: Report from Study
  Country: US (occurrence: US)
  Receive Date: 20130129
  Receipt Date: 20130129
  Transmission Date: 20140127
  Serious: No
  Sender: FDA-Public Use
  Company Number: US-ABBOTT-12P-163-0947340-00

PATIENT
  Age: 58 Year
  Sex: Female

DRUGS (6)
  1. HUMIRA 40 MG/0.8 ML PEN [Suspect]
     Indication: PSORIASIS
     Dates: start: 20120601, end: 20120601
  2. HUMIRA 40 MG/0.8 ML PEN [Suspect]
     Dates: start: 20120615
  3. CITALOPRAM [Concomitant]
     Indication: DEPRESSION
  4. MULTIVITAMIN [Concomitant]
     Indication: PRODUCT USED FOR UNKNOWN INDICATION
  5. OSTEO BI-FLEX [Concomitant]
     Indication: PRODUCT USED FOR UNKNOWN INDICATION
  6. TEARS AGAIN HYDRATE [Concomitant]
     Indication: DRY EYE

REACTIONS (8)
  - Pharyngeal oedema [Not Recovered/Not Resolved]
  - Blood pressure increased [Not Recovered/Not Resolved]
  - Hyperhidrosis [Not Recovered/Not Resolved]
  - Headache [Not Recovered/Not Resolved]
  - Headache [Not Recovered/Not Resolved]
  - Headache [Not Recovered/Not Resolved]
  - Injection site pain [Not Recovered/Not Resolved]
  - Injection site pain [Not Recovered/Not Resolved]
